FAERS Safety Report 5369535-1 (Version None)
Quarter: 2007Q2

REPORT INFORMATION
  Report Type: 
  Country: None (occurrence: None)
  Receive Date: 20070625
  Receipt Date: 20070618
  Transmission Date: 20071010
  Serious: Yes (Life-Threatening, Hospitalization, Other)
  Sender: FDA-Public Use
  Company Number: B0475227A

PATIENT
  Age: 60 Year
  Sex: Female

DRUGS (6)
  1. AVANDIA [Suspect]
     Dosage: 4MG PER DAY
     Route: 048
     Dates: end: 20070501
  2. PLAVIX [Concomitant]
     Dosage: 75MG PER DAY
     Route: 065
  3. MAREVAN [Concomitant]
     Dosage: 3MG PER DAY
     Route: 065
  4. CONCOR 5 [Concomitant]
  5. GLUCOVANCE [Concomitant]
  6. VASTAREL [Concomitant]
     Indication: HYPERTENSION
     Dosage: 5MG PER DAY
     Route: 065

REACTIONS (5)
  - CHEST PAIN [None]
  - DYSPNOEA [None]
  - HYPERHIDROSIS [None]
  - NECK PAIN [None]
  - PAIN IN EXTREMITY [None]
